FAERS Safety Report 6120836-9 (Version None)
Quarter: 2009Q1

REPORT INFORMATION
  Report Type: 
  Country: None (occurrence: None)
  Receive Date: 20090317
  Receipt Date: 20090306
  Transmission Date: 20090719
  Serious: Yes (Other)
  Sender: FDA-Public Use
  Company Number: JP-ROCHE-594698

PATIENT
  Age: 42 Year
  Sex: Male
  Weight: 51 kg

DRUGS (4)
  1. RIVOTRIL [Suspect]
     Indication: EPILEPSY
     Dosage: CO-INDICATION: MOVEMENTS INVOLUNTARY
     Route: 048
     Dates: start: 20081009, end: 20081014
  2. FLOMOX [Suspect]
     Indication: DRUG USE FOR UNKNOWN INDICATION
     Route: 048
  3. FAMOTIDINE [Suspect]
     Indication: DRUG USE FOR UNKNOWN INDICATION
     Route: 065
  4. VOLTAREN [Concomitant]
     Dosage: ROUTE: TOPICAL INJECTION, ROUTE: RECTAL SUPPOSITORY
     Route: 061

REACTIONS (1)
  - LIVER DISORDER [None]
